FAERS Safety Report 21883823 (Version 3)
Quarter: 2023Q1

REPORT INFORMATION
  Report Type: Spontaneous
  Country: US (occurrence: US)
  Receive Date: 20230119
  Receipt Date: 20230314
  Transmission Date: 20230418
  Serious: No
  Sender: FDA-Public Use
  Company Number: US-UNITED THERAPEUTICS-UNT-2022-032665

PATIENT
  Sex: Female
  Weight: 92.971 kg

DRUGS (3)
  1. REMODULIN [Suspect]
     Active Substance: TREPROSTINIL
     Indication: Pulmonary arterial hypertension
     Dosage: 0.102 ?G/KG, CONTINUING
     Route: 058
  2. REMODULIN [Suspect]
     Active Substance: TREPROSTINIL
     Dosage: UNK, CONTINUING
     Route: 058
     Dates: start: 20200212
  3. REVATIO [Concomitant]
     Active Substance: SILDENAFIL CITRATE
     Indication: Product used for unknown indication
     Dosage: UNK
     Route: 065

REACTIONS (16)
  - Infusion site induration [Unknown]
  - Infusion site discomfort [Unknown]
  - Infusion site swelling [Unknown]
  - Infusion site pain [Unknown]
  - Infusion site haemorrhage [Not Recovered/Not Resolved]
  - Infusion site discharge [Unknown]
  - Infusion site vesicles [Unknown]
  - Infusion site scab [Unknown]
  - Infusion site infection [Recovering/Resolving]
  - Eczema [Unknown]
  - Dermatitis contact [Unknown]
  - Diarrhoea [Unknown]
  - Decreased appetite [Unknown]
  - Infusion site nodule [Unknown]
  - Infusion site extravasation [Unknown]
  - Dry skin [Unknown]

NARRATIVE: CASE EVENT DATE: 20220101
